FAERS Safety Report 9553561 (Version 2)
Quarter: 2014Q3

REPORT INFORMATION
  Report Type: Spontaneous
  Country: CA (occurrence: CA)
  Receive Date: 20130925
  Receipt Date: 20140717
  Transmission Date: 20150326
  Serious: Yes (Disabling, Other)
  Sender: FDA-Public Use
  Company Number: CA-009507513-1309CAN011364

PATIENT
  Age: 69 Year
  Sex: Female
  Weight: 72.56 kg

DRUGS (14)
  1. COZAAR [Concomitant]
     Active Substance: LOSARTAN POTASSIUM
     Indication: PRODUCT USED FOR UNKNOWN INDICATION
     Dosage: 50 MG, QD
     Route: 048
  2. DOMPERIDONE [Concomitant]
     Active Substance: DOMPERIDONE
     Indication: PRODUCT USED FOR UNKNOWN INDICATION
     Route: 065
  3. NEXIUM [Concomitant]
     Active Substance: ESOMEPRAZOLE MAGNESIUM
     Indication: PRODUCT USED FOR UNKNOWN INDICATION
     Dosage: 40 MG, QD
     Route: 048
  4. ACTONEL [Suspect]
     Active Substance: RISEDRONATE SODIUM
     Indication: PRODUCT USED FOR UNKNOWN INDICATION
     Dosage: UNK
     Route: 065
     Dates: start: 1998, end: 2000
  5. LECTOPAM [Concomitant]
     Active Substance: BROMAZEPAM
     Dosage: 1.5 MG, HS
     Route: 048
  6. VITAMIN D [Concomitant]
     Active Substance: CHOLECALCIFEROL
     Dosage: 1000 IU, UNK
     Route: 065
  7. FOSAMAX [Suspect]
     Active Substance: ALENDRONATE SODIUM
     Dosage: UNK, QW
     Route: 048
  8. CELEBREX [Concomitant]
     Active Substance: CELECOXIB
     Indication: PRODUCT USED FOR UNKNOWN INDICATION
     Dosage: 200 MG, QD
     Route: 048
  9. FOSAMAX [Suspect]
     Active Substance: ALENDRONATE SODIUM
     Indication: OSTEOPOROSIS
     Dosage: UNK, QW
     Route: 048
     Dates: start: 2000, end: 20120716
  10. TYLENOL [Concomitant]
     Active Substance: ACETAMINOPHEN
     Dosage: 500 MG, PRN
     Route: 065
  11. APOCAL [Concomitant]
     Dosage: UNK UNK, BID
     Route: 065
  12. DIDROCAL [Suspect]
     Active Substance: CALCIUM CARBONATE\ETIDRONATE DISODIUM
     Indication: PRODUCT USED FOR UNKNOWN INDICATION
     Dosage: UNK
     Route: 065
     Dates: start: 1996, end: 1998
  13. COZAAR [Concomitant]
     Active Substance: LOSARTAN POTASSIUM
     Dosage: 100 MG, QD
  14. LOSEC (OMEPRAZOLE) [Concomitant]
     Indication: PRODUCT USED FOR UNKNOWN INDICATION
     Route: 065

REACTIONS (2)
  - Pain [Not Recovered/Not Resolved]
  - Stress fracture [Not Recovered/Not Resolved]
